FAERS Safety Report 14619487 (Version 1)
Quarter: 2018Q1

REPORT INFORMATION
  Report Type: Spontaneous
  Country: US (occurrence: US)
  Receive Date: 20180309
  Receipt Date: 20180309
  Transmission Date: 20180509
  Serious: Yes (Death)
  Sender: FDA-Public Use
  Company Number: US-VIFOR (INTERNATIONAL) INC.-VIT-2018-02242

PATIENT
  Age: 83 Year
  Sex: Male

DRUGS (32)
  1. VELTASSA [Suspect]
     Active Substance: PATIROMER
     Indication: HYPERKALAEMIA
     Route: 048
     Dates: start: 20161228, end: 201802
  2. LEVOTHYROXINE SODIUM. [Concomitant]
     Active Substance: LEVOTHYROXINE SODIUM
  3. MEDROL [Concomitant]
     Active Substance: METHYLPREDNISOLONE
  4. PROCRIT [Concomitant]
     Active Substance: ERYTHROPOIETIN
  5. CYANOCOBALAMIN. [Concomitant]
     Active Substance: CYANOCOBALAMIN
  6. ALLOPURINOL. [Concomitant]
     Active Substance: ALLOPURINOL
  7. ACETYLSALICYLIC ACID [Concomitant]
     Active Substance: ASPIRIN
  8. COLECALCIFEROL~~CALCIUM CARBONATE [Concomitant]
  9. BENTYL [Concomitant]
     Active Substance: DICYCLOMINE HYDROCHLORIDE
  10. CYTRA-K [Concomitant]
     Active Substance: CITRIC ACID MONOHYDRATE\POTASSIUM CITRATE
  11. FLOMAX [Concomitant]
     Active Substance: TAMSULOSIN HYDROCHLORIDE
  12. HYDROXYZINE HYDROCHLORIDE. [Concomitant]
     Active Substance: HYDROXYZINE HYDROCHLORIDE
  13. PROBIOTIC [Concomitant]
     Active Substance: PROBIOTICS NOS
  14. FIBERCON [Concomitant]
     Active Substance: CALCIUM POLYCARBOPHIL
  15. FOSAMAX [Concomitant]
     Active Substance: ALENDRONATE SODIUM
  16. LOMOTIL [Concomitant]
     Active Substance: ATROPINE SULFATE\DIPHENOXYLATE HYDROCHLORIDE
  17. METHADONE HYDROCHLORIDE. [Concomitant]
     Active Substance: METHADONE HYDROCHLORIDE
  18. VITAMINS NOS [Concomitant]
     Active Substance: VITAMINS
  19. PROVIGIL [Concomitant]
     Active Substance: MODAFINIL
  20. ZEMPLAR [Concomitant]
     Active Substance: PARICALCITOL
  21. ZOFRAN [Concomitant]
     Active Substance: ONDANSETRON HYDROCHLORIDE
  22. COLCRYS [Concomitant]
     Active Substance: COLCHICINE
  23. GLYCERYL TRINITRATE [Concomitant]
     Active Substance: NITROGLYCERIN
  24. TEMAZEPAM. [Concomitant]
     Active Substance: TEMAZEPAM
  25. COLACE [Concomitant]
     Active Substance: DOCUSATE SODIUM
  26. KIONEX [Concomitant]
     Active Substance: SODIUM POLYSTYRENE SULFONATE
  27. MACRODANTIN [Concomitant]
     Active Substance: NITROFURANTOIN
  28. METOPROLOL TARTRATE. [Concomitant]
     Active Substance: METOPROLOL TARTRATE
  29. CYCLOBENZAPRINE. [Concomitant]
     Active Substance: CYCLOBENZAPRINE
  30. LYRICA [Concomitant]
     Active Substance: PREGABALIN
  31. PREDNISONE. [Concomitant]
     Active Substance: PREDNISONE
  32. ZOCOR [Concomitant]
     Active Substance: SIMVASTATIN

REACTIONS (1)
  - Death [Fatal]

NARRATIVE: CASE EVENT DATE: 20180220
